FAERS Safety Report 23286032 (Version 1)
Quarter: 2023Q4

REPORT INFORMATION
  Report Type: Spontaneous
  Country: GB (occurrence: GB)
  Receive Date: 20231212
  Receipt Date: 20231212
  Transmission Date: 20240109
  Serious: Yes (Disabling)
  Sender: FDA-Public Use
  Company Number: None

PATIENT
  Age: 37 Year
  Sex: Female

DRUGS (1)
  1. ENOXAPARIN SODIUM [Suspect]
     Active Substance: ENOXAPARIN SODIUM
     Dosage: 80 MG

REACTIONS (5)
  - Injection site rash [Recovered/Resolved]
  - Skin abrasion [Recovered/Resolved]
  - Contusion [Recovered/Resolved]
  - Injection site irritation [Unknown]
  - Exposure during pregnancy [Unknown]
